FAERS Safety Report 12119715 (Version 1)
Quarter: 2016Q1

REPORT INFORMATION
  Report Type: Spontaneous
  Country: CZ (occurrence: CZ)
  Receive Date: 20160226
  Receipt Date: 20160226
  Transmission Date: 20160526
  Serious: Yes (Life-Threatening, Hospitalization)
  Sender: FDA-Public Use
  Company Number: CZ-009507513-1602CZE012125

PATIENT
  Age: 30 Year
  Sex: Female

DRUGS (1)
  1. GRAZAX [Suspect]
     Active Substance: PHLEUM PRATENSE POLLEN
     Indication: SEASONAL ALLERGY
     Dosage: 75000 SQ, UNK
     Route: 065
     Dates: start: 20160217, end: 20160217

REACTIONS (6)
  - Blood pressure immeasurable [Recovered/Resolved]
  - Hyperhidrosis [Recovered/Resolved]
  - Pharyngeal oedema [Recovered/Resolved]
  - Pulse abnormal [Recovered/Resolved]
  - Dysphonia [Recovered/Resolved]
  - Dyspnoea [Recovered/Resolved]

NARRATIVE: CASE EVENT DATE: 20160217
